FAERS Safety Report 4738937-6 (Version None)
Quarter: 2005Q3

REPORT INFORMATION
  Report Type: 
  Country: None (occurrence: None)
  Receive Date: 20050801
  Receipt Date: 20050110
  Transmission Date: 20060218
  Serious: Yes (Life-Threatening, Other)
  Sender: FDA-Public Use
  Company Number: 211290

PATIENT
  Age: 89 Year
  Sex: Female
  Weight: 64 kg

DRUGS (1)
  1. HERCEPTIN [Suspect]
     Indication: BREAST CANCER
     Dosage: 128 MG, 1/WEEK, INTRAVENOUS
     Route: 042
     Dates: start: 20040608, end: 20041221

REACTIONS (1)
  - CARDIAC FAILURE CONGESTIVE [None]
